FAERS Safety Report 17285710 (Version 1)
Quarter: 2020Q1

REPORT INFORMATION
  Report Type: Spontaneous
  Country: BE (occurrence: BE)
  Receive Date: 20200118
  Receipt Date: 20200118
  Transmission Date: 20200409
  Serious: Yes (Other)
  Sender: FDA-Public Use
  Company Number: BE-AMGEN-BELSP2020004166

PATIENT
  Age: 77 Year
  Sex: Male

DRUGS (2)
  1. XTANDI [Concomitant]
     Active Substance: ENZALUTAMIDE
     Dosage: UNK
  2. XGEVA [Suspect]
     Active Substance: DENOSUMAB
     Indication: METASTASES TO BONE
     Dosage: UNK
     Route: 065
     Dates: end: 201909

REACTIONS (4)
  - Tooth loss [Unknown]
  - Oral pain [Unknown]
  - Loose tooth [Unknown]
  - Bladder cancer [Unknown]

NARRATIVE: CASE EVENT DATE: 201911
